FAERS Safety Report 26058916 (Version 1)
Quarter: 2025Q4

REPORT INFORMATION
  Report Type: Spontaneous
  Country: US (occurrence: US)
  Receive Date: 20251118
  Receipt Date: 20251118
  Transmission Date: 20260117
  Serious: No
  Sender: COLLEGIUM PHARMACEUTICAL
  Company Number: US-COLLEGIUM PHARMACEUTICAL, INC.-20250902542

PATIENT

DRUGS (2)
  1. BELBUCA [Suspect]
     Active Substance: BUPRENORPHINE HYDROCHLORIDE
     Indication: Pain
     Dosage: 450 MICROGRAM, BID (EVERY 12 HOURS)
     Route: 002
  2. Tylenol with codeine no. 2 [Concomitant]
     Indication: Pain
     Dosage: UNK, UNKNOWN
     Route: 065

REACTIONS (1)
  - Product packaging difficult to open [None]
